FAERS Safety Report 7420768-X (Version None)
Quarter: 2011Q2

REPORT INFORMATION
  Report Type: 
  Country: None (occurrence: None)
  Receive Date: 20110418
  Receipt Date: 20110411
  Transmission Date: 20111010
  Serious: Yes (Death, Hospitalization)
  Sender: FDA-Public Use
  Company Number: JP-ROCHE-763254

PATIENT
  Sex: Male

DRUGS (18)
  1. TOCILIZUMAB [Suspect]
     Indication: RHEUMATOID ARTHRITIS
     Route: 041
     Dates: start: 20090216, end: 20090216
  2. TOCILIZUMAB [Suspect]
     Route: 041
     Dates: start: 20090803, end: 20090803
  3. TOCILIZUMAB [Suspect]
     Route: 041
     Dates: start: 20090831, end: 20090831
  4. TOCILIZUMAB [Suspect]
     Route: 041
     Dates: start: 20090608, end: 20090608
  5. TOCILIZUMAB [Suspect]
     Route: 041
     Dates: start: 20091026, end: 20091026
  6. TOCILIZUMAB [Suspect]
     Route: 041
     Dates: start: 20091130, end: 20091130
  7. TOCILIZUMAB [Suspect]
     Route: 041
     Dates: start: 20100323
  8. AZULFIDINE [Concomitant]
     Route: 048
  9. TOCILIZUMAB [Suspect]
     Route: 041
     Dates: start: 20090316, end: 20090316
  10. TOCILIZUMAB [Suspect]
     Route: 041
     Dates: start: 20091228, end: 20091228
  11. TOCILIZUMAB [Suspect]
     Route: 041
     Dates: start: 20100125, end: 20100125
  12. TOCILIZUMAB [Suspect]
     Route: 041
     Dates: start: 20090511, end: 20090511
  13. TOCILIZUMAB [Suspect]
     Route: 041
     Dates: start: 20100222, end: 20100222
  14. TOCILIZUMAB [Suspect]
     Route: 041
     Dates: start: 20090413, end: 20090413
  15. TOCILIZUMAB [Suspect]
     Route: 041
     Dates: start: 20090706, end: 20090706
  16. TOCILIZUMAB [Suspect]
     Route: 041
     Dates: start: 20090928, end: 20090928
  17. PREDONINE [Concomitant]
     Route: 048
  18. FOLIC ACID [Concomitant]
     Route: 048

REACTIONS (5)
  - SPINAL COMPRESSION FRACTURE [None]
  - PLEURISY [None]
  - PLEURAL EFFUSION [None]
  - MALNUTRITION [None]
  - DECREASED APPETITE [None]
